FAERS Safety Report 14505813 (Version 1)
Quarter: 2018Q1

REPORT INFORMATION
  Report Type: Spontaneous
  Country: DE (occurrence: DE)
  Receive Date: 20180208
  Receipt Date: 20180208
  Transmission Date: 20180509
  Serious: Yes (Other)
  Sender: FDA-Public Use
  Company Number: DE-PFIZER INC-2018055862

PATIENT
  Age: 35 Year
  Sex: Female
  Weight: 60 kg

DRUGS (11)
  1. LAMOTRIGINE. [Concomitant]
     Active Substance: LAMOTRIGINE
     Dosage: UNK
  2. CITALOPRAM HYDROCHLORIDE [Concomitant]
     Active Substance: CITALOPRAM HYDROCHLORIDE
     Dosage: 40 MG, UNK
  3. VIGABATRIN. [Concomitant]
     Active Substance: VIGABATRIN
     Dosage: 3500 MG, UNK
  4. VALPROIC ACID. [Concomitant]
     Active Substance: VALPROIC ACID
     Dosage: UNK
  5. VIMPAT [Suspect]
     Active Substance: LACOSAMIDE
     Indication: EPILEPSY
     Dosage: 200 MG, 2X/DAY (BID)
  6. TOPIRAMATE. [Suspect]
     Active Substance: TOPIRAMATE
     Dosage: UNK
     Dates: start: 2005, end: 2007
  7. OXCARBAZEPINE. [Concomitant]
     Active Substance: OXCARBAZEPINE
     Dosage: 1200 MG, UNK
  8. ESOMEPRAZOLE [Concomitant]
     Active Substance: ESOMEPRAZOLE
     Dosage: 1 DF, ONCE DAILY (QD)
  9. CARBAMAZEPINE. [Concomitant]
     Active Substance: CARBAMAZEPINE
     Dosage: UNK
     Dates: start: 198501
  10. LEVETIRACETAM. [Suspect]
     Active Substance: LEVETIRACETAM
     Dosage: 1500 MG, UNK
     Dates: start: 2002, end: 2003
  11. VIMPAT [Suspect]
     Active Substance: LACOSAMIDE
     Dosage: 250 MG, 2X/DAY (BID)

REACTIONS (8)
  - Simple partial seizures [Unknown]
  - Partial seizures with secondary generalisation [Unknown]
  - Disease recurrence [Unknown]
  - Change in seizure presentation [Unknown]
  - Generalised tonic-clonic seizure [Not Recovered/Not Resolved]
  - Irritability [Unknown]
  - Focal dyscognitive seizures [Unknown]
  - Disease recurrence [Not Recovered/Not Resolved]

NARRATIVE: CASE EVENT DATE: 2015
